FAERS Safety Report 11240806 (Version 3)
Quarter: 2015Q4

REPORT INFORMATION
  Report Type: Spontaneous
  Country: IT (occurrence: IT)
  Receive Date: 20150706
  Receipt Date: 20151019
  Transmission Date: 20160304
  Serious: No
  Sender: FDA-Public Use
  Company Number: IT-JNJFOC-20150701342

PATIENT
  Sex: Female

DRUGS (3)
  1. DEXAMETHASONE. [Concomitant]
     Active Substance: DEXAMETHASONE
     Indication: PROPHYLAXIS
     Dosage: 20 MG OR EQUIVALENT
     Route: 042
  2. TRABECTEDIN [Suspect]
     Active Substance: TRABECTEDIN
     Indication: OVARIAN CANCER RECURRENT
     Route: 042
  3. DOXORUBICIN HYDROCHLORIDE. [Suspect]
     Active Substance: DOXORUBICIN HYDROCHLORIDE
     Indication: OVARIAN CANCER RECURRENT
     Route: 042

REACTIONS (13)
  - Alanine aminotransferase increased [Unknown]
  - Pyrexia [Unknown]
  - Peripheral sensory neuropathy [Unknown]
  - Anaemia [Unknown]
  - Vomiting [Unknown]
  - Phlebitis [Unknown]
  - Myalgia [Unknown]
  - Mucosal inflammation [Unknown]
  - Drug intolerance [Unknown]
  - Nausea [Unknown]
  - Thrombocytopenia [Unknown]
  - Asthenia [Unknown]
  - Neutropenia [Unknown]
